FAERS Safety Report 5006106-0 (Version None)
Quarter: 2006Q2

REPORT INFORMATION
  Report Type: 
  Country: None (occurrence: None)
  Receive Date: 20060518
  Receipt Date: 20060330
  Transmission Date: 20061013
  Serious: Yes (Hospitalization, Other)
  Sender: FDA-Public Use
  Company Number: US-MERCK-0603USA04664

PATIENT
  Age: 70 Year
  Sex: Female
  Weight: 73 kg

DRUGS (7)
  1. FOSAMAX [Suspect]
     Route: 048
  2. PLAVIX [Concomitant]
     Route: 065
     Dates: start: 19980101, end: 20011210
  3. PLAVIX [Concomitant]
     Route: 065
     Dates: start: 20011201
  4. ASPIRIN [Concomitant]
     Route: 065
  5. PREMPRO [Concomitant]
     Route: 065
  6. DIAZEPAM [Concomitant]
     Route: 065
  7. VIOXX [Concomitant]
     Route: 065

REACTIONS (12)
  - ATROPHY [None]
  - BACK PAIN [None]
  - DENTAL CARIES [None]
  - FAILURE OF IMPLANT [None]
  - GINGIVAL SWELLING [None]
  - GRANULOMA [None]
  - IMPAIRED HEALING [None]
  - OSTEOMYELITIS [None]
  - OSTEONECROSIS [None]
  - PURULENCE [None]
  - RESORPTION BONE INCREASED [None]
  - TRANSIENT ISCHAEMIC ATTACK [None]
